FAERS Safety Report 12956931 (Version 2)
Quarter: 2016Q4

REPORT INFORMATION
  Report Type: Report from Study
  Country: None (occurrence: CA)
  Receive Date: 20161118
  Receipt Date: 20161121
  Transmission Date: 20170207
  Serious: Yes (Other)
  Sender: FDA-Public Use
  Company Number: CA-ABBVIE-16K-028-1781275-00

PATIENT
  Sex: Male

DRUGS (3)
  1. HUMIRA [Suspect]
     Active Substance: ADALIMUMAB
     Indication: CROHN^S DISEASE
     Route: 058
     Dates: start: 20110928
  2. HUMIRA [Suspect]
     Active Substance: ADALIMUMAB
     Indication: ANKYLOSING SPONDYLITIS
  3. NAPROXEN. [Suspect]
     Active Substance: NAPROXEN
     Indication: THORACIC VERTEBRAL FRACTURE
     Route: 048
     Dates: start: 2016, end: 2016

REACTIONS (6)
  - Constipation [Not Recovered/Not Resolved]
  - Fall [Recovered/Resolved]
  - Crohn^s disease [Recovered/Resolved]
  - Drug effect incomplete [Not Recovered/Not Resolved]
  - Flatulence [Not Recovered/Not Resolved]
  - Thoracic vertebral fracture [Unknown]

NARRATIVE: CASE EVENT DATE: 2016
